FAERS Safety Report 8697542 (Version 2)
Quarter: 2012Q4

REPORT INFORMATION
  Report Type: 
  Country: GB (occurrence: GB)
  Receive Date: 20120801
  Receipt Date: 20120910
  Transmission Date: 20130627
  Serious: Yes (Hospitalization)
  Sender: FDA-Public Use
  Company Number: GB-NAPPMUNDI-GBR-2012-0011106

PATIENT
  Age: 65 Year
  Sex: Female

DRUGS (6)
  1. OXYCONTIN TABLETS [Suspect]
     Indication: PAIN
     Dosage: 20 mg, bid
     Route: 048
  2. OXYCONTIN TABLETS [Suspect]
     Dosage: 80 mg, AM
     Route: 048
  3. OXYCONTIN TABLETS [Suspect]
     Dosage: 80 mg, PM
     Route: 048
  4. OXYNORM [Suspect]
     Indication: BREAKTHROUGH PAIN
     Dosage: 20-30 mg, prn
     Route: 048
     Dates: start: 201010
  5. OXYNORM [Suspect]
     Dosage: 10 mg, prn
     Route: 048
  6. GABAPENTIN [Concomitant]
     Dosage: 100 mg, tid

REACTIONS (9)
  - Hypoxia [Unknown]
  - Respiratory depression [Recovered/Resolved]
  - Hepatic function abnormal [None]
  - Wrong drug administered [None]
  - Constipation [None]
  - Knee arthroplasty [None]
  - Somnolence [None]
  - Drug intolerance [None]
  - Cyanosis [None]
